FAERS Safety Report 5712831-6 (Version None)
Quarter: 2008Q2

REPORT INFORMATION
  Report Type: 
  Country: None (occurrence: None)
  Receive Date: 20080422
  Receipt Date: 20080411
  Transmission Date: 20081010
  Serious: Yes (Other)
  Sender: FDA-Public Use
  Company Number: A0717591A

PATIENT
  Age: 66 Year
  Sex: Female

DRUGS (2)
  1. ADVAIR HFA [Suspect]
     Indication: ASTHMA
     Dosage: 1PUFF TWICE PER DAY
     Route: 055
  2. ENALAPRIL MALEATE [Concomitant]

REACTIONS (6)
  - BLINDNESS [None]
  - DYSPHONIA [None]
  - EYE PAIN [None]
  - PHOTOPHOBIA [None]
  - THROAT IRRITATION [None]
  - VISION BLURRED [None]
